FAERS Safety Report 8546772 (Version 7)
Quarter: 2012Q4

REPORT INFORMATION
  Report Type: Spontaneous
  Country: CA (occurrence: None)
  Receive Date: 20120425
  Receipt Date: 20120823
  Transmission Date: 20130627
  Serious: Yes (Other)
  Sender: FDA-Public Use
  Company Number: 2012HGS-003529

PATIENT
  Age: 42 Year
  Sex: Female
  Weight: 76 kg

DRUGS (7)
  1. BENLYSTA [Suspect]
     Indication: SYSTEMIC LUPUS ERYTHEMATOSUS
     Dosage: 1 IN 4 WK, INTRAVENOUS DRIP
     Route: 041
     Dates: start: 20120118
  2. OXYCODONE HYDROCHLORIDE [Concomitant]
  3. NEXIUM [Concomitant]
  4. MELOXICAM [Concomitant]
  5. FLUCONAZOLE [Concomitant]
  6. IBUPROFEN [Concomitant]
  7. MODAFINIL (MODAFINIL) (MODAFINIL) [Concomitant]

REACTIONS (15)
  - LYMPHADENOPATHY [None]
  - MORBID THOUGHTS [None]
  - THYROID NEOPLASM [None]
  - HALLUCINATION [None]
  - Neoplasm progression [None]
  - PYREXIA [None]
  - ABDOMINAL PAIN UPPER [None]
  - ABDOMINAL DISTENSION [None]
  - NAUSEA [None]
  - ALANINE AMINOTRANSFERASE INCREASED [None]
  - ASPARTATE AMINOTRANSFERASE INCREASED [None]
  - GAMMA-GLUTAMYLTRANSFERASE INCREASED [None]
  - NASOPHARYNGITIS [None]
  - PLEURISY [None]
  - PNEUMONIA [None]
